FAERS Safety Report 5763170-9 (Version None)
Quarter: 2008Q2

REPORT INFORMATION
  Report Type: 
  Country: None (occurrence: None)
  Receive Date: 20080609
  Receipt Date: 20080528
  Transmission Date: 20081010
  Serious: Yes (Other)
  Sender: FDA-Public Use
  Company Number: FR-PFIZER INC-2008046308

PATIENT
  Age: 30 Year
  Sex: Male

DRUGS (2)
  1. ZYVOX [Suspect]
     Indication: WOUND INFECTION STAPHYLOCOCCAL
  2. CEFTAZIDIME PENTAHYDRATE [Concomitant]

REACTIONS (1)
  - HYPERKALAEMIA [None]
